FAERS Safety Report 4542697-1 (Version None)
Quarter: 2004Q4

REPORT INFORMATION
  Report Type: 
  Country: None (occurrence: None)
  Receive Date: 20041230
  Receipt Date: 20041015
  Transmission Date: 20050328
  Serious: Yes (Hospitalization, Disabling)
  Sender: FDA-Public Use
  Company Number: US-MERCK-0410USA02476

PATIENT
  Age: 80 Year
  Sex: Male
  Weight: 81 kg

DRUGS (1)
  1. VIOXX [Suspect]
     Indication: ARTHRITIS
     Route: 048

REACTIONS (30)
  - ABDOMINAL PAIN [None]
  - ARTERIOSCLEROSIS [None]
  - ASTHENIA [None]
  - ATROPHY [None]
  - BACK DISORDER [None]
  - BACK PAIN [None]
  - BLOOD GLUCOSE INCREASED [None]
  - CEREBROVASCULAR ACCIDENT [None]
  - CHEST WALL ABSCESS [None]
  - CONSTIPATION [None]
  - CYSTITIS [None]
  - DERMATITIS ATOPIC [None]
  - DIFFICULTY IN WALKING [None]
  - DIVERTICULUM [None]
  - DUODENAL ULCER HAEMORRHAGE [None]
  - HYPERCHOLESTEROLAEMIA [None]
  - HYPERTENSION [None]
  - HYPOAESTHESIA [None]
  - INCONTINENCE [None]
  - MUSCLE TWITCHING [None]
  - MYALGIA [None]
  - MYOCARDIAL INFARCTION [None]
  - OTITIS MEDIA [None]
  - PAIN IN EXTREMITY [None]
  - PAIN IN JAW [None]
  - PALPITATIONS [None]
  - RENAL CYST [None]
  - SEBORRHOEIC DERMATITIS [None]
  - UPPER RESPIRATORY TRACT INFECTION [None]
  - VIRAL INFECTION [None]
